FAERS Safety Report 22240604 (Version 1)
Quarter: 2023Q2

REPORT INFORMATION
  Report Type: Spontaneous
  Country: US (occurrence: None)
  Receive Date: 20230421
  Receipt Date: 20230421
  Transmission Date: 20230722
  Serious: No
  Sender: FDA-Public Use
  Company Number: None

PATIENT
  Sex: 0

DRUGS (1)
  1. EPINEPHRINE [Suspect]
     Active Substance: EPINEPHRINE
     Indication: Allergy to arthropod sting
     Dosage: OTHER QUANTITY : 2 INJECTION(S);?FREQUENCY : AS NEEDED;?
     Route: 030

REACTIONS (2)
  - Product expiration date issue [None]
  - Product label confusion [None]

NARRATIVE: CASE EVENT DATE: 20230217
